FAERS Safety Report 25526295 (Version 1)
Quarter: 2025Q3

REPORT INFORMATION
  Report Type: Spontaneous
  Country: US (occurrence: US)
  Receive Date: 20250707
  Receipt Date: 20250707
  Transmission Date: 20251021
  Serious: No
  Sender: ELI LILLY AND COMPANY
  Company Number: US-ELI_LILLY_AND_COMPANY-US202506024952

PATIENT
  Age: 48 Year
  Sex: Female

DRUGS (7)
  1. ZEPBOUND [Suspect]
     Active Substance: TIRZEPATIDE
     Indication: Obstructive sleep apnoea syndrome
     Route: 065
     Dates: start: 20250313
  2. ZEPBOUND [Suspect]
     Active Substance: TIRZEPATIDE
     Indication: Obstructive sleep apnoea syndrome
     Route: 065
     Dates: start: 20250313
  3. ZEPBOUND [Suspect]
     Active Substance: TIRZEPATIDE
     Indication: Obstructive sleep apnoea syndrome
     Route: 065
     Dates: start: 20250313
  4. ZEPBOUND [Suspect]
     Active Substance: TIRZEPATIDE
     Indication: Obstructive sleep apnoea syndrome
     Route: 065
     Dates: start: 20250313
  5. LISINOPRIL [Concomitant]
     Active Substance: LISINOPRIL
     Indication: Hypertension
     Dates: start: 201401
  6. AMLODIPINE [Concomitant]
     Active Substance: AMLODIPINE BESYLATE
     Indication: Hypertension
     Dates: start: 202301
  7. PROZAC [Concomitant]
     Active Substance: FLUOXETINE HYDROCHLORIDE
     Indication: Anxiety
     Dates: start: 201901

REACTIONS (2)
  - Incorrect dose administered [Unknown]
  - Injection site urticaria [Unknown]

NARRATIVE: CASE EVENT DATE: 20250611
